FAERS Safety Report 14732979 (Version 1)
Quarter: 2018Q2

REPORT INFORMATION
  Report Type: Spontaneous
  Country: FR (occurrence: FR)
  Receive Date: 20180409
  Receipt Date: 20180409
  Transmission Date: 20180711
  Serious: Yes (Life-Threatening, Hospitalization)
  Sender: FDA-Public Use
  Company Number: FR-ACCORD-065343

PATIENT
  Age: 52 Year
  Sex: Male
  Weight: 54 kg

DRUGS (6)
  1. GLICLAZIDE [Concomitant]
     Active Substance: GLICLAZIDE
     Indication: TYPE 2 DIABETES MELLITUS
  2. ABIRATERONE [Concomitant]
     Active Substance: ABIRATERONE
     Indication: PROSTATE CANCER METASTATIC
     Dates: start: 201508
  3. DOCETAXEL. [Suspect]
     Active Substance: DOCETAXEL
     Indication: PROSTATE CANCER METASTATIC
     Dosage: EVERY 3 WEEKS, SECOND INJECTION OF DOCETAXEL IN MAY-2016
     Dates: start: 201604, end: 201605
  4. DENOSUMAB [Concomitant]
     Active Substance: DENOSUMAB
     Indication: PROSTATE CANCER METASTATIC
     Dates: start: 201508
  5. METFORMIN [Concomitant]
     Active Substance: METFORMIN HYDROCHLORIDE
     Indication: TYPE 2 DIABETES MELLITUS
  6. PREDNISONE. [Concomitant]
     Active Substance: PREDNISONE
     Indication: PROSTATE CANCER METASTATIC
     Dates: start: 201508

REACTIONS (2)
  - Myositis [Recovering/Resolving]
  - Fasciitis [Recovering/Resolving]

NARRATIVE: CASE EVENT DATE: 201605
